FAERS Safety Report 7062130-8 (Version None)
Quarter: 2010Q4

REPORT INFORMATION
  Report Type: 
  Country: None (occurrence: None)
  Receive Date: 20101026
  Receipt Date: 20101015
  Transmission Date: 20110411
  Serious: Yes (Death)
  Sender: FDA-Public Use
  Company Number: PHHY2010JP54867

PATIENT
  Sex: Male
  Weight: 65 kg

DRUGS (13)
  1. AFINITOR [Suspect]
     Indication: METASTATIC RENAL CELL CARCINOMA
     Dosage: 10 MG DAILY
     Route: 048
     Dates: start: 20100513, end: 20100607
  2. SUNITINIB MALATE [Concomitant]
     Dosage: UNK
     Route: 048
     Dates: start: 20090715, end: 20091103
  3. SORAFENIB TOSILATE [Concomitant]
     Dosage: UNK
     Route: 048
     Dates: start: 20091222
  4. MUCODYNE [Concomitant]
     Indication: METASTATIC RENAL CELL CARCINOMA
     Dosage: 1500 MG, UNK
     Route: 048
  5. CELECOXIB [Concomitant]
     Indication: METASTATIC RENAL CELL CARCINOMA
     Dosage: 200 MG, UNK
     Route: 048
  6. NAUZELIN [Concomitant]
     Indication: METASTATIC RENAL CELL CARCINOMA
     Dosage: 30 MG, UNK
     Route: 048
  7. TAKEPRON [Concomitant]
     Indication: METASTATIC RENAL CELL CARCINOMA
     Dosage: 15 MG, UNK
     Route: 048
  8. BETAMETHASONE [Concomitant]
     Indication: METASTATIC RENAL CELL CARCINOMA
     Dosage: 1 MG, UNK
     Route: 048
  9. WYPAX [Concomitant]
     Indication: METASTATIC RENAL CELL CARCINOMA
     Dosage: 1.5 MG, UNK
     Route: 048
  10. MYSLEE [Concomitant]
     Indication: METASTATIC RENAL CELL CARCINOMA
     Dosage: 10 MG, UNK
     Route: 048
  11. NORVASC [Concomitant]
     Dosage: 2.5 MG, UNK
     Route: 048
  12. LOSARTAN POTASSIUM AND HYDROCHLOROTHIAZIDE [Concomitant]
     Dosage: 1 MG, UNK
     Route: 048
  13. BARACLUDE [Concomitant]
     Dosage: 0.5 MG, UNK
     Route: 048
     Dates: start: 20100512, end: 20100804

REACTIONS (3)
  - MALIGNANT NEOPLASM PROGRESSION [None]
  - PULMONARY EMBOLISM [None]
  - RESPIRATORY DISTRESS [None]
